FAERS Safety Report 6860015-0 (Version None)
Quarter: 2010Q3

REPORT INFORMATION
  Report Type: 
  Country: None (occurrence: None)
  Receive Date: 20100720
  Receipt Date: 20100708
  Transmission Date: 20110219
  Serious: Yes (Other)
  Sender: FDA-Public Use
  Company Number: CN-PFIZER INC-2010085601

PATIENT
  Age: 48 Year
  Sex: Female

DRUGS (3)
  1. PHARMORUBICIN [Suspect]
     Indication: BREAST CANCER
     Dosage: 60 MG/M2, UNK
     Route: 041
     Dates: start: 20100601, end: 20100708
  2. CYCLOPHOSPHAMIDE [Concomitant]
     Indication: BREAST CANCER
     Dosage: UNK
     Route: 041
  3. FLUOROURACIL [Concomitant]
     Indication: BREAST CANCER
     Dosage: UNK
     Route: 041

REACTIONS (1)
  - HEART RATE DECREASED [None]
